FAERS Safety Report 9422982 (Version 2)
Quarter: 2013Q3

REPORT INFORMATION
  Report Type: Spontaneous
  Country: CO (occurrence: None)
  Receive Date: 20130717
  Receipt Date: 20130909
  Transmission Date: 20140515
  Serious: Yes (Other)
  Sender: FDA-Public Use
  Company Number: 2013036904

PATIENT
  Age: 54 Year
  Sex: Male

DRUGS (1)
  1. IMMUNOGLOBULIN [Suspect]
     Indication: CRANIAL NERVE DISORDER

REACTIONS (5)
  - Drug ineffective for unapproved indication [None]
  - Chest discomfort [None]
  - Respiratory muscle weakness [None]
  - Dysphagia [None]
  - Aspiration [None]
